FAERS Safety Report 9329532 (Version 1)
Quarter: 2013Q2

REPORT INFORMATION
  Report Type: Spontaneous
  Country: US (occurrence: US)
  Receive Date: 20130604
  Receipt Date: 20130604
  Transmission Date: 20140414
  Serious: Yes (Death)
  Sender: FDA-Public Use
  Company Number: US-CELGENEUS-163-21880-13054605

PATIENT
  Age: 84 Year
  Sex: Male

DRUGS (3)
  1. REVLIMID [Suspect]
     Indication: PLASMA CELL MYELOMA
     Dosage: 10 MILLIGRAM
     Route: 048
     Dates: start: 200906
  2. REVLIMID [Suspect]
     Dosage: 5MG-10MG
     Route: 048
     Dates: start: 200907
  3. REVLIMID [Suspect]
     Dosage: 2.5 MILLIGRAM
     Route: 048
     Dates: start: 201301, end: 2013

REACTIONS (1)
  - Death [Fatal]
